FAERS Safety Report 19926295 (Version 1)
Quarter: 2021Q4

REPORT INFORMATION
  Report Type: Spontaneous
  Country: CN (occurrence: CN)
  Receive Date: 20211007
  Receipt Date: 20211007
  Transmission Date: 20220303
  Serious: Yes (Hospitalization)
  Sender: FDA-Public Use
  Company Number: CN-BAXTER-2021BAX026920

PATIENT
  Age: 40 Year
  Sex: Female
  Weight: 49.1 kg

DRUGS (12)
  1. CYCLOPHOSPHAMIDE [Suspect]
     Active Substance: CYCLOPHOSPHAMIDE
     Indication: Diffuse large B-cell lymphoma
     Dosage: CYCLOPHOSPHAMIDE FOR INJECTION 1.08G + 0.9% SODIUM CHLORIDE INJECTION 250ML
     Route: 041
     Dates: start: 20200714, end: 20200714
  2. CYCLOPHOSPHAMIDE [Suspect]
     Active Substance: CYCLOPHOSPHAMIDE
     Dosage: DOSE REINTRODUCED
     Route: 041
  3. SODIUM CHLORIDE [Suspect]
     Active Substance: SODIUM CHLORIDE
     Indication: Medication dilution
     Dosage: CYCLOPHOSPHAMIDE FOR INJECTION 1.08G + 0.9% SODIUM CHLORIDE INJECTION 250ML
     Route: 041
     Dates: start: 20200714, end: 20200714
  4. SODIUM CHLORIDE [Suspect]
     Active Substance: SODIUM CHLORIDE
     Dosage: VINCRISTINE SULFATE FOR INJECTION 2MG + 0.9% SODIUM CHLORIDE INJECTION 100ML
     Route: 041
     Dates: start: 20200714, end: 20200714
  5. SODIUM CHLORIDE [Suspect]
     Active Substance: SODIUM CHLORIDE
     Dosage: DOSE REINTRODUCED; CYCLOPHOSPHAMIDE FOR INJECTION + 0.9% SODIUM CHLORIDE
     Route: 041
  6. SODIUM CHLORIDE [Suspect]
     Active Substance: SODIUM CHLORIDE
     Dosage: DOSE REINTRODUCED; VINCRISTINE SULFATE + 0.9% SODIUM CHLORIDE
     Route: 041
  7. DEXTROSE [Suspect]
     Active Substance: DEXTROSE
     Indication: Medication dilution
     Dosage: PIRARUBICIN HYDROCHLORIDE FOR INJECTION 70MG + 5% GLUCOSE INJECTION 500ML
     Route: 041
     Dates: start: 20200714, end: 20200714
  8. DEXTROSE [Suspect]
     Active Substance: DEXTROSE
     Dosage: DOSE REINTRODUCED; PIRARUBICIN HYDROCHLORIDE FOR INJECTION + 5% GLUCOSE INJECTION
     Route: 041
  9. VINCRISTINE SULFATE [Suspect]
     Active Substance: VINCRISTINE SULFATE
     Indication: Diffuse large B-cell lymphoma
     Dosage: VINCRISTINE SULFATE FOR INJECTION 2MG + 0.9% SODIUM CHLORIDE INJECTION 100ML
     Route: 041
     Dates: start: 20200714, end: 20200714
  10. VINCRISTINE SULFATE [Suspect]
     Active Substance: VINCRISTINE SULFATE
     Dosage: DOSE REINTRODUCED
     Route: 041
  11. PIRARUBICIN HYDROCHLORIDE [Suspect]
     Active Substance: PIRARUBICIN HYDROCHLORIDE
     Indication: Diffuse large B-cell lymphoma
     Dosage: PIRARUBICIN HYDROCHLORIDE FOR INJECTION 70MG + 5% GLUCOSE INJECTION 500ML
     Route: 041
     Dates: start: 20200714, end: 20200714
  12. PIRARUBICIN HYDROCHLORIDE [Suspect]
     Active Substance: PIRARUBICIN HYDROCHLORIDE
     Dosage: DOSE REINTRODUCED
     Route: 041

REACTIONS (1)
  - Myelosuppression [Recovering/Resolving]

NARRATIVE: CASE EVENT DATE: 20200724
